FAERS Safety Report 25172430 (Version 4)
Quarter: 2025Q3

REPORT INFORMATION
  Report Type: Spontaneous
  Country: CA (occurrence: CA)
  Receive Date: 20250408
  Receipt Date: 20250918
  Transmission Date: 20251020
  Serious: Yes (Death, Hospitalization)
  Sender: CELLTRION
  Company Number: CA-CELLTRION INC.-2025CA010036

PATIENT

DRUGS (1)
  1. STEQEYMA [Suspect]
     Active Substance: USTEKINUMAB-STBA
     Indication: Psoriasis
     Route: 058
     Dates: start: 20250225

REACTIONS (3)
  - Death [Fatal]
  - Hospitalisation [Fatal]
  - Intentional dose omission [Fatal]

NARRATIVE: CASE EVENT DATE: 20250424
